FAERS Safety Report 15747446 (Version 1)
Quarter: 2018Q4

REPORT INFORMATION
  Report Type: Spontaneous
  Country: US (occurrence: US)
  Receive Date: 20181220
  Receipt Date: 20181220
  Transmission Date: 20190205
  Serious: Yes (Hospitalization, Other)
  Sender: FDA-Public Use
  Company Number: US-BRISTOL-MYERS SQUIBB COMPANY-BMS-2018-117186

PATIENT
  Age: 69 Year
  Sex: Female
  Weight: 67 kg

DRUGS (2)
  1. DASATINIB. [Suspect]
     Active Substance: DASATINIB
     Indication: NON-SMALL CELL LUNG CANCER
     Dosage: 50 MG, QD
     Route: 048
     Dates: start: 20180503
  2. OSIMERTINIB. [Suspect]
     Active Substance: OSIMERTINIB
     Indication: NON-SMALL CELL LUNG CANCER
     Dosage: 80 MG, QD
     Route: 048

REACTIONS (3)
  - Product use in unapproved indication [Unknown]
  - Prescribed underdose [Unknown]
  - Partial seizures [Recovering/Resolving]

NARRATIVE: CASE EVENT DATE: 20181209
